FAERS Safety Report 9435587 (Version 2)
Quarter: 2013Q4

REPORT INFORMATION
  Report Type: Spontaneous
  Country: US (occurrence: None)
  Receive Date: 20130730
  Receipt Date: 20131029
  Transmission Date: 20140711
  Serious: Yes (Other)
  Sender: FDA-Public Use
  Company Number: ACO_30206_2012

PATIENT
  Age: 52 Year
  Sex: Male

DRUGS (2)
  1. AMPYRA [Suspect]
     Indication: PRODUCT USED FOR UNKNOWN INDICATION
     Dates: start: 20100621
  2. AVONEX(INTERFERON BETA-1A) [Concomitant]

REACTIONS (3)
  - Depression [None]
  - Impaired healing [None]
  - Skin lesion [None]
